FAERS Safety Report 5466753-9 (Version None)
Quarter: 2007Q3

REPORT INFORMATION
  Report Type: 
  Country: None (occurrence: None)
  Receive Date: 20070925
  Receipt Date: 20070910
  Transmission Date: 20080115
  Serious: Yes (Hospitalization)
  Sender: FDA-Public Use
  Company Number: CH-ELI_LILLY_AND_COMPANY-CH200709001516

PATIENT
  Age: 44 Year
  Sex: Male

DRUGS (10)
  1. ZYPREXA [Suspect]
     Indication: PSYCHOTIC DISORDER
     Dosage: 15 MG, DAILY (1/D)
     Route: 048
     Dates: start: 20060927, end: 20061009
  2. ZYPREXA [Suspect]
     Dosage: 10 MG, DAILY (1/D)
     Route: 048
     Dates: start: 20061010, end: 20061112
  3. ZYPREXA [Suspect]
     Dosage: 15 MG, DAILY (1/D)
     Route: 048
     Dates: start: 20061113, end: 20061122
  4. ZYPREXA [Suspect]
     Dosage: 12.5 MG, DAILY (1/D)
     Route: 048
     Dates: start: 20061123
  5. SERTRALIN [Concomitant]
     Indication: DEPRESSION
     Dosage: 25 MG, DAILY (1/D)
     Route: 048
     Dates: start: 20061011, end: 20061015
  6. SERTRALIN [Concomitant]
     Dosage: 50 MG, DAILY (1/D)
     Route: 048
     Dates: start: 20061016, end: 20061127
  7. SERTRALIN [Concomitant]
     Dosage: 25 MG, UNK
     Route: 048
     Dates: start: 20061128
  8. LAMOTRIGINE [Concomitant]
     Indication: DEPRESSION
     Dosage: 25 MG, DAILY (1/D)
     Route: 048
     Dates: start: 20061122, end: 20061203
  9. LAMOTRIGINE [Concomitant]
     Dosage: 75 MG, DAILY (1/D)
     Route: 048
     Dates: start: 20061204, end: 20061205
  10. LAMOTRIGINE [Concomitant]
     Dosage: 50 MG, DAILY (1/D)
     Route: 048
     Dates: start: 20061206

REACTIONS (3)
  - AGITATION [None]
  - AKATHISIA [None]
  - SLEEP DISORDER [None]
